FAERS Safety Report 22289395 (Version 7)
Quarter: 2025Q3

REPORT INFORMATION
  Report Type: Report from Study
  Country: CL (occurrence: CL)
  Receive Date: 20230505
  Receipt Date: 20250717
  Transmission Date: 20251020
  Serious: Yes (Other)
  Sender: NOVARTIS
  Company Number: CL-002147023-NVSC2023CL101815

PATIENT
  Age: 48 Year
  Sex: Male

DRUGS (4)
  1. COSENTYX [Suspect]
     Active Substance: SECUKINUMAB
     Indication: Spondylitis
     Dosage: 150 MG, QMO
     Route: 065
     Dates: start: 20221115
  2. COSENTYX [Suspect]
     Active Substance: SECUKINUMAB
     Indication: Axial spondyloarthritis
     Dosage: 150 MG, QMO
     Route: 058
     Dates: start: 20221121
  3. COSENTYX [Suspect]
     Active Substance: SECUKINUMAB
     Dosage: 150 MG, QMO
     Route: 065
     Dates: start: 20221215
  4. COSENTYX [Suspect]
     Active Substance: SECUKINUMAB
     Dosage: 150 MG, QMO
     Route: 058
     Dates: start: 20230115

REACTIONS (19)
  - Malignant anorectal neoplasm [Unknown]
  - Haematochezia [Unknown]
  - Rectal haemorrhage [Unknown]
  - Anorectal ulcer [Not Recovered/Not Resolved]
  - Anal fissure [Unknown]
  - Anal ulcer [Recovering/Resolving]
  - Major depression [Unknown]
  - Condition aggravated [Not Recovered/Not Resolved]
  - Rectal discharge [Unknown]
  - Abnormal faeces [Recovered/Resolved]
  - Pain [Unknown]
  - Fibromyalgia [Unknown]
  - Fear of disease [Unknown]
  - Malaise [Unknown]
  - Back pain [Unknown]
  - Dysstasia [Not Recovered/Not Resolved]
  - Product use in unapproved indication [Unknown]
  - Off label use [Unknown]
  - Drug ineffective [Unknown]

NARRATIVE: CASE EVENT DATE: 20221220
